FAERS Safety Report 5818529-8 (Version None)
Quarter: 2008Q3

REPORT INFORMATION
  Report Type: 
  Country: None (occurrence: None)
  Receive Date: 20080717
  Receipt Date: 20080708
  Transmission Date: 20090109
  Serious: Yes (Other)
  Sender: FDA-Public Use
  Company Number: 14236376

PATIENT
  Age: 40 Year
  Sex: Female

DRUGS (1)
  1. EMSAM [Suspect]
     Dosage: TOP
     Route: 061

REACTIONS (1)
  - CATHETERISATION CARDIAC [None]
